FAERS Safety Report 4694047-8 (Version None)
Quarter: 2005Q2

REPORT INFORMATION
  Report Type: 
  Country: None (occurrence: None)
  Receive Date: 20050616
  Receipt Date: 20050603
  Transmission Date: 20051028
  Serious: Yes (Hospitalization)
  Sender: FDA-Public Use
  Company Number: 2005085154

PATIENT
  Sex: Female
  Weight: 78.0187 kg

DRUGS (2)
  1. DETROL LA [Suspect]
     Indication: HYPERTONIC BLADDER
     Dosage: 4 MG (4 MG, 1 IN 1 D)
     Dates: start: 20050401
  2. XALATAN [Suspect]
     Indication: GLAUCOMA
     Dosage: 3 MCG (1.5 MCG, QPM  INTERVAL: EVERY NIGHT), OPHTHALMIC
     Route: 047

REACTIONS (5)
  - BLOOD PRESSURE ABNORMAL [None]
  - CONDITION AGGRAVATED [None]
  - CORONARY ARTERY SURGERY [None]
  - HYPERTONIC BLADDER [None]
  - THYROID DISORDER [None]
